FAERS Safety Report 9804872 (Version 2)
Quarter: 2014Q1

REPORT INFORMATION
  Report Type: Spontaneous
  Country: US (occurrence: US)
  Receive Date: 20140108
  Receipt Date: 20140121
  Transmission Date: 20141002
  Serious: Yes (Other)
  Sender: FDA-Public Use
  Company Number: US-JNJFOC-20131217379

PATIENT
  Age: 74 Year
  Sex: Female
  Weight: 71.22 kg

DRUGS (6)
  1. BENADRYL ULTRA TAB [Suspect]
     Indication: MULTIPLE ALLERGIES
     Route: 048
     Dates: start: 2010
  2. BENADRYL ULTRA TAB [Suspect]
     Indication: MULTIPLE ALLERGIES
     Route: 048
     Dates: start: 2013
  3. BENADRYL ULTRA TAB [Suspect]
     Indication: PRURITUS
     Route: 048
     Dates: start: 2013
  4. BENADRYL ULTRA TAB [Suspect]
     Indication: PRURITUS
     Route: 048
     Dates: start: 2010
  5. ANTIBIOTIC [Concomitant]
     Indication: PNEUMONIA
     Route: 065
  6. ANTIBIOTIC [Concomitant]
     Indication: KIDNEY INFECTION
     Route: 065

REACTIONS (2)
  - Hallucination [Recovered/Resolved]
  - Abnormal behaviour [Recovered/Resolved]
